FAERS Safety Report 24594640 (Version 2)
Quarter: 2024Q4

REPORT INFORMATION
  Report Type: Spontaneous
  Country: BR (occurrence: BR)
  Receive Date: 20241108
  Receipt Date: 20241220
  Transmission Date: 20250115
  Serious: Yes (Death)
  Sender: NOVARTIS
  Company Number: BR-002147023-NVSC2024BR216120

PATIENT
  Sex: Female

DRUGS (1)
  1. INCLISIRAN [Suspect]
     Active Substance: INCLISIRAN
     Indication: Product used for unknown indication
     Dosage: UNK, ONCE/SINGLE (SHE USED JUST ONE APPLICATION)
     Route: 058

REACTIONS (2)
  - Bone marrow failure [Fatal]
  - Post procedural sepsis [Fatal]
